FAERS Safety Report 8271542-6 (Version None)
Quarter: 2012Q2

REPORT INFORMATION
  Report Type: 
  Country: None (occurrence: None)
  Receive Date: 20120410
  Receipt Date: 20120403
  Transmission Date: 20120825
  Serious: No
  Sender: FDA-Public Use
  Company Number: US-PFIZER INC-2012065356

PATIENT
  Sex: Female
  Weight: 109 kg

DRUGS (10)
  1. SEROQUEL [Concomitant]
     Dosage: 25 MG, 3X/DAY (1 PO TID)
     Route: 048
     Dates: start: 20111123
  2. TRIAMCINOLONE ACETONIDE [Concomitant]
     Indication: PRURITUS
     Dosage: 0.025 %, 2X/DAY
     Dates: start: 20120309
  3. CELEBREX [Suspect]
     Indication: ARTHRITIS
     Dosage: 200 MG, 1X/DAY
     Route: 048
     Dates: start: 20060101
  4. SIMVASTATIN [Concomitant]
     Dosage: 10 MG, 1X/DAY (1 PO QD)
     Route: 048
     Dates: start: 20080116
  5. LEVOTHYROXINE SODIUM [Concomitant]
     Dosage: 88 MCG TABS, 1 QOD ALTERNATING WITH 75 MCG
     Route: 048
     Dates: start: 20120302
  6. VITAMIN B-12 [Concomitant]
     Dosage: 1 MG/ML, 1 ML Q MONTH
     Dates: start: 20120327, end: 20120401
  7. CELEBREX [Suspect]
     Indication: OSTEOARTHRITIS
     Dosage: 200 MG, 1X/DAY, PRN
     Dates: start: 20111123
  8. CITALOPRAM HYDROBROMIDE [Concomitant]
     Dosage: 20 MG, 1X/DAY (1 PO QD)
     Route: 048
     Dates: start: 20111123
  9. NYSTATIN [Concomitant]
     Indication: RASH
     Dosage: UNK
     Dates: start: 20120316
  10. LEVOTHROID [Concomitant]
     Dosage: 75 MCG TAB, 1 PO  QOD ALTERNATING WITH 88 MCG
     Route: 048
     Dates: start: 20120302

REACTIONS (2)
  - PRURITUS GENERALISED [None]
  - PRURITUS [None]
